FAERS Safety Report 8547559-0 (Version None)
Quarter: 2012Q3

REPORT INFORMATION
  Report Type: 
  Country: None (occurrence: None)
  Receive Date: 20120727
  Receipt Date: 20120410
  Transmission Date: 20120928
  Serious: No
  Sender: FDA-Public Use
  Company Number: US-ASTRAZENECA-2012SE21917

PATIENT
  Age: 36 Year
  Sex: Female

DRUGS (2)
  1. SEROQUEL [Suspect]
     Route: 048
  2. NEXIUM [Concomitant]
     Route: 048

REACTIONS (4)
  - INTENTIONAL DRUG MISUSE [None]
  - HALLUCINATION [None]
  - PSYCHOTIC DISORDER [None]
  - EXPIRED DRUG ADMINISTERED [None]
